FAERS Safety Report 11693748 (Version 3)
Quarter: 2015Q4

REPORT INFORMATION
  Report Type: Spontaneous
  Country: US (occurrence: US)
  Receive Date: 20151103
  Receipt Date: 20151218
  Transmission Date: 20160304
  Serious: No
  Sender: FDA-Public Use
  Company Number: US-ACTELION PHARMACEUTICALS US, INC.-A-NJ2015-126444

PATIENT
  Age: 70 Year
  Sex: Female

DRUGS (8)
  1. CYANOCOBALAMIN. [Concomitant]
     Active Substance: CYANOCOBALAMIN
  2. FLUOCINONIDE. [Concomitant]
     Active Substance: FLUOCINONIDE
  3. VALCHLOR [Suspect]
     Active Substance: MECHLORETHAMINE
     Indication: MYCOSIS FUNGOIDES
     Dosage: UNK, DAILY
     Route: 061
     Dates: start: 20151008
  4. DESONIDE. [Concomitant]
     Active Substance: DESONIDE
  5. ASPIRIN. [Concomitant]
     Active Substance: ASPIRIN
  6. TRIAMCINOLONE [Concomitant]
     Active Substance: TRIAMCINOLONE
  7. AMLODIPINE [Concomitant]
     Active Substance: AMLODIPINE BESYLATE
  8. VITAMIN D [Concomitant]
     Active Substance: CHOLECALCIFEROL

REACTIONS (5)
  - Contusion [Recovering/Resolving]
  - Alopecia [Recovering/Resolving]
  - Burning sensation [Recovering/Resolving]
  - Skin hyperpigmentation [Unknown]
  - Application site macule [Not Recovered/Not Resolved]

NARRATIVE: CASE EVENT DATE: 20151113
